FAERS Safety Report 14631607 (Version 1)
Quarter: 2018Q1

REPORT INFORMATION
  Report Type: Other
  Country: ES (occurrence: ES)
  Receive Date: 20180313
  Receipt Date: 20180313
  Transmission Date: 20180509
  Serious: Yes (Life-Threatening, Hospitalization, Other)
  Sender: FDA-Public Use
  Company Number: ES-TAKEDA-2018MPI002576

PATIENT
  Age: 44 Year
  Sex: Male

DRUGS (3)
  1. CYCLOPHOSPHAMIDE. [Suspect]
     Active Substance: CYCLOPHOSPHAMIDE
     Indication: PLASMA CELL MYELOMA
     Dosage: UNK
     Route: 042
     Dates: start: 20160613, end: 20160721
  2. DEXAMETHASONE. [Suspect]
     Active Substance: DEXAMETHASONE
     Indication: PLASMA CELL MYELOMA
     Dosage: UNK
     Route: 042
     Dates: start: 20160613, end: 20160721
  3. VELCADE [Suspect]
     Active Substance: BORTEZOMIB
     Indication: PLASMA CELL MYELOMA
     Dosage: 3.5 MG, UNK
     Route: 042
     Dates: start: 20160613, end: 20160721

REACTIONS (1)
  - Meningitis listeria [Recovered/Resolved]

NARRATIVE: CASE EVENT DATE: 20160721
